FAERS Safety Report 9171372 (Version 1)
Quarter: 2013Q1

REPORT INFORMATION
  Report Type: Spontaneous
  Country: US (occurrence: None)
  Receive Date: 20130318
  Receipt Date: 20130318
  Transmission Date: 20140127
  Serious: No
  Sender: FDA-Public Use
  Company Number: None

PATIENT
  Age: 29 Year
  Sex: Female
  Weight: 72.12 kg

DRUGS (2)
  1. CYMBALTA, 30 MG, LILLY [Suspect]
     Indication: ANXIETY
     Route: 048
     Dates: start: 20130306, end: 20130317
  2. CYMBALTA, 30 MG, LILLY [Suspect]
     Indication: DEPRESSION
     Route: 048
     Dates: start: 20130306, end: 20130317

REACTIONS (1)
  - Blood glucose decreased [None]
